FAERS Safety Report 6935858 (Version 2)
Quarter: 2014Q1

REPORT INFORMATION
  Report Type: Spontaneous
  Country: US (occurrence: US)
  Receive Date: 20090312
  Receipt Date: 20140207
  Transmission Date: 20141002
  Serious: Yes (Other)
  Sender: FDA-Public Use
  Company Number: US-ASTRAZENECA-2009UW06011

PATIENT
  Sex: Female

DRUGS (2)
  1. ZOMIG [Suspect]
     Indication: MIGRAINE
     Dosage: 5 MG, 3 PER WEEK TO 18 PER MONTH
     Route: 048
  2. IMITREX [Concomitant]

REACTIONS (4)
  - Suicidal ideation [Unknown]
  - Migraine [Unknown]
  - Memory impairment [Unknown]
  - Intentional drug misuse [Unknown]
